FAERS Safety Report 8439978-8 (Version None)
Quarter: 2012Q2

REPORT INFORMATION
  Report Type: 
  Country: None (occurrence: None)
  Receive Date: 20120615
  Receipt Date: 20120611
  Transmission Date: 20120825
  Serious: Yes (Other)
  Sender: FDA-Public Use
  Company Number: IT-AMGEN-ITASP2012031788

PATIENT
  Age: 68 Year
  Sex: Female

DRUGS (3)
  1. NPLATE [Suspect]
     Dosage: 0.5 MUG/KG, QMO
     Route: 058
  2. NPLATE [Suspect]
     Dosage: 4 MUG/KG, QWK
     Route: 058
  3. NPLATE [Suspect]
     Indication: AUTOIMMUNE THROMBOCYTOPENIA
     Dosage: 1 MUG/KG, QWK
     Route: 058
     Dates: start: 20110526

REACTIONS (1)
  - OFF LABEL USE [None]
